FAERS Safety Report 6305475-9 (Version None)
Quarter: 2009Q3

REPORT INFORMATION
  Report Type: 
  Country: None (occurrence: None)
  Receive Date: 20090811
  Receipt Date: 20090720
  Transmission Date: 20100115
  Serious: Yes (Other)
  Sender: FDA-Public Use
  Company Number: US-MYLANLABS-2009S1007312

PATIENT
  Age: 77 Year
  Sex: Female
  Weight: 95.26 kg

DRUGS (10)
  1. FENTANYL TRANSDERMAL SYSTEM [Suspect]
     Indication: GASTROINTESTINAL PAIN
     Dosage: Q72HRS
     Route: 062
     Dates: start: 20090414, end: 20090418
  2. PREMARIN [Concomitant]
  3. LASIX [Concomitant]
  4. NEURONTIN [Concomitant]
  5. CLONIDINE [Concomitant]
  6. TYLENOL (CAPLET) [Concomitant]
  7. SYNTHROID [Concomitant]
  8. LOPRAL [Concomitant]
  9. CLINORIL [Concomitant]
  10. HYDROCHLOROTHIAZIDE [Concomitant]

REACTIONS (12)
  - ANXIETY [None]
  - ASTHENIA [None]
  - BLOOD PRESSURE INCREASED [None]
  - CONFUSIONAL STATE [None]
  - DIZZINESS [None]
  - DRUG WITHDRAWAL SYNDROME [None]
  - HEART RATE INCREASED [None]
  - INSOMNIA [None]
  - MUSCLE TWITCHING [None]
  - NERVOUSNESS [None]
  - RESTLESSNESS [None]
  - TREMOR [None]
